FAERS Safety Report 10630707 (Version 1)
Quarter: 2014Q4

REPORT INFORMATION
  Report Type: Spontaneous
  Country: US (occurrence: US)
  Receive Date: 20141205
  Receipt Date: 20141205
  Transmission Date: 20150529
  Serious: No
  Sender: FDA-Public Use
  Company Number: US-BRISTOL-MYERS SQUIBB COMPANY-21348875

PATIENT
  Age: 59 Year
  Sex: Male

DRUGS (10)
  1. ISOSORBIDE [Concomitant]
     Active Substance: ISOSORBIDE
  2. ATORVASTATIN [Concomitant]
     Active Substance: ATORVASTATIN
  3. VICTOZA [Concomitant]
     Active Substance: LIRAGLUTIDE
  4. PHENTERMINE [Concomitant]
     Active Substance: PHENTERMINE
  5. CITALOPRAM [Concomitant]
     Active Substance: CITALOPRAM HYDROBROMIDE
  6. CARVEDILOL. [Concomitant]
     Active Substance: CARVEDILOL
  7. BUPROPION [Concomitant]
     Active Substance: BUPROPION
  8. NIFEDICAL XL [Concomitant]
     Active Substance: NIFEDIPINE
  9. LOSARTAN POTASSIUM. [Concomitant]
     Active Substance: LOSARTAN POTASSIUM
  10. SPRYCEL [Suspect]
     Active Substance: DASATINIB
     Indication: CHRONIC MYELOID LEUKAEMIA

REACTIONS (4)
  - Dizziness [Unknown]
  - Nausea [Unknown]
  - Musculoskeletal stiffness [Unknown]
  - Confusional state [Unknown]
